FAERS Safety Report 4506844-X (Version None)
Quarter: 2004Q4

REPORT INFORMATION
  Report Type: 
  Country: None (occurrence: None)
  Receive Date: 20041122
  Receipt Date: 20040225
  Transmission Date: 20050328
  Serious: Yes (Other)
  Sender: FDA-Public Use
  Company Number: PHBS2004AT02888

PATIENT
  Age: 35 Year
  Sex: Female

DRUGS (1)
  1. ZOMETA [Suspect]
     Indication: FIBROUS DYSPLASIA OF BONE
     Dosage: ONCE PER 1/2 YEAR
     Route: 065

REACTIONS (2)
  - ABORTION [None]
  - DRUG EXPOSURE DURING PREGNANCY [None]
